FAERS Safety Report 18779603 (Version 2)
Quarter: 2021Q1

REPORT INFORMATION
  Report Type: Report from Study
  Country: None (occurrence: BR)
  Receive Date: 20210125
  Receipt Date: 20210224
  Transmission Date: 20210419
  Serious: Yes (Disabling, Other)
  Sender: FDA-Public Use
  Company Number: BR-ABBVIE-21K-020-3741413-00

PATIENT
  Sex: Female
  Weight: 78 kg

DRUGS (5)
  1. HUMIRA [Suspect]
     Active Substance: ADALIMUMAB
     Indication: RHEUMATOID ARTHRITIS
     Route: 058
     Dates: start: 20180731, end: 2018
  2. PREDNISONA [Concomitant]
     Active Substance: PREDNISONE
     Indication: SWELLING
  3. PREDNISONA [Concomitant]
     Active Substance: PREDNISONE
     Indication: ARTHRALGIA
  4. PREDNISONA [Concomitant]
     Active Substance: PREDNISONE
     Indication: ARTHRALGIA
  5. PREDNISONA [Concomitant]
     Active Substance: PREDNISONE
     Indication: PAIN IN EXTREMITY

REACTIONS (7)
  - Nodule [Recovered/Resolved]
  - Arthralgia [Unknown]
  - Visual impairment [Not Recovered/Not Resolved]
  - Blindness [Not Recovered/Not Resolved]
  - Optic atrophy [Not Recovered/Not Resolved]
  - Diplopia [Not Recovered/Not Resolved]
  - Swelling [Unknown]

NARRATIVE: CASE EVENT DATE: 2018
